FAERS Safety Report 9124526 (Version 1)
Quarter: 2013Q1

REPORT INFORMATION
  Report Type: Spontaneous
  Country: US (occurrence: US)
  Receive Date: 20130227
  Receipt Date: 20130227
  Transmission Date: 20140127
  Serious: No
  Sender: FDA-Public Use
  Company Number: US-ASTRAZENECA-2013SE10834

PATIENT
  Age: 897 Month
  Sex: Female
  Weight: 81.6 kg

DRUGS (3)
  1. SYMBICORT [Suspect]
     Indication: ASTHMA
     Dosage: 320/9 MCG, TWO TIMES A DAY
     Route: 055
     Dates: start: 2009
  2. COZAAR [Concomitant]
     Indication: BLOOD PRESSURE MANAGEMENT
     Dosage: DAILY
     Route: 048
  3. ASPIRIN [Concomitant]
     Indication: BLOOD PRESSURE MANAGEMENT
     Dosage: DAILY
     Route: 048

REACTIONS (6)
  - Sinusitis [Recovering/Resolving]
  - Burning sensation [Recovering/Resolving]
  - Wheezing [Recovering/Resolving]
  - Rhinorrhoea [Recovering/Resolving]
  - Sneezing [Recovering/Resolving]
  - Cough [Recovering/Resolving]
